FAERS Safety Report 16387088 (Version 2)
Quarter: 2025Q3

REPORT INFORMATION
  Report Type: Spontaneous
  Country: EU (occurrence: EU)
  Receive Date: 20190604
  Receipt Date: 20250802
  Transmission Date: 20251021
  Serious: Yes (Death, Hospitalization, Other)
  Sender: AUROBINDO
  Company Number: EU-AUROBINDO-AUR-APL-2019-031093

PATIENT
  Age: 53 Year
  Sex: Female

DRUGS (3)
  1. HYDROCHLOROTHIAZIDE [Suspect]
     Active Substance: HYDROCHLOROTHIAZIDE
     Indication: Hypertension
     Route: 065
  2. LISINOPRIL [Suspect]
     Active Substance: LISINOPRIL
     Indication: Hypertension
     Route: 065
  3. FOLIC ACID [Concomitant]
     Active Substance: FOLIC ACID
     Indication: Iron deficiency anaemia
     Route: 065

REACTIONS (7)
  - General physical health deterioration [Fatal]
  - Uterine enlargement [Unknown]
  - Vaginal haemorrhage [Unknown]
  - Fatigue [Unknown]
  - Dyspnoea [Unknown]
  - Metastases to lung [Unknown]
  - Cervix carcinoma [Unknown]

NARRATIVE: CASE EVENT DATE: 20171220
